FAERS Safety Report 9796989 (Version 1)
Quarter: 2014Q1

REPORT INFORMATION
  Report Type: Spontaneous
  Country: US (occurrence: US)
  Receive Date: 20140105
  Receipt Date: 20140105
  Transmission Date: 20141002
  Serious: Yes (Death, Other)
  Sender: FDA-Public Use
  Company Number: US-UCBSA-107596

PATIENT
  Age: 40 Year
  Sex: Female

DRUGS (8)
  1. ALPRAZOLAM [Suspect]
     Dosage: INGESTION+DERMAL
  2. FENTANYL [Suspect]
     Route: 062
  3. TRAMADOL [Suspect]
     Dosage: INGESTION+DERMAL
  4. CLONAZEPAM [Suspect]
     Dosage: INGESTION+DERMAL
  5. TRAZODONE [Suspect]
     Dosage: INGESTION+DERMAL
  6. AMITRIPTYLINE [Suspect]
     Dosage: INGESTION+DERMAL
  7. FLUOXETINE [Suspect]
     Dosage: INGESTION+DERMAL
  8. ETHANOL [Suspect]
     Dosage: INGESTION+DERMAL

REACTIONS (1)
  - Drug abuse [Fatal]
